FAERS Safety Report 25975776 (Version 2)
Quarter: 2025Q4

REPORT INFORMATION
  Report Type: Spontaneous
  Country: EU (occurrence: EU)
  Receive Date: 20251029
  Receipt Date: 20251126
  Transmission Date: 20260118
  Serious: Yes (Death, Life-Threatening)
  Sender: ALEXION PHARMACEUTICALS
  Company Number: None

PATIENT
  Age: 72 Year
  Sex: Male
  Weight: 77 kg

DRUGS (2)
  1. IMJUDO [Suspect]
     Active Substance: TREMELIMUMAB\TREMELIMUMAB-ACTL
     Indication: Hepatocellular carcinoma
     Dosage: UNK
     Dates: start: 20250730, end: 20250827
  2. IMFINZI [Suspect]
     Active Substance: DURVALUMAB
     Indication: Hepatocellular carcinoma
     Dosage: UNK
     Dates: start: 20250730, end: 20250827

REACTIONS (5)
  - Blister [Fatal]
  - Renal failure [Fatal]
  - Skin exfoliation [Fatal]
  - Scab [Fatal]
  - Dehydration [Fatal]

NARRATIVE: CASE EVENT DATE: 20250910
